FAERS Safety Report 15269634 (Version 1)
Quarter: 2018Q3

REPORT INFORMATION
  Report Type: Spontaneous
  Country: US (occurrence: US)
  Receive Date: 20180726
  Receipt Date: 20180726
  Transmission Date: 20181010
  Serious: No
  Sender: FDA-Public Use
  Company Number: None

PATIENT
  Age: 16 Year
  Sex: Female

DRUGS (1)
  1. STIVARGA [Suspect]
     Active Substance: REGORAFENIB
     Route: 048
     Dates: start: 20180612, end: 20180710

REACTIONS (2)
  - Hypertension [None]
  - Swelling [None]

NARRATIVE: CASE EVENT DATE: 20180710
